FAERS Safety Report 25072728 (Version 1)
Quarter: 2025Q1

REPORT INFORMATION
  Report Type: Spontaneous
  Country: GB (occurrence: GB)
  Receive Date: 20250313
  Receipt Date: 20250313
  Transmission Date: 20250408
  Serious: Yes (Life-Threatening, Other)
  Sender: TEVA
  Company Number: GB-MHRA-TPP301183C582956YC1741278857324

PATIENT
  Age: 48 Year
  Sex: Male
  Weight: 126 kg

DRUGS (9)
  1. DOXYCYCLINE [Suspect]
     Active Substance: DOXYCYCLINE
     Indication: Ill-defined disorder
     Route: 048
     Dates: start: 20250120, end: 20250125
  2. LISINOPRIL [Concomitant]
     Active Substance: LISINOPRIL
     Indication: Ill-defined disorder
     Route: 048
     Dates: start: 20241120
  3. INSULIN ASPART [Concomitant]
     Active Substance: INSULIN ASPART
     Indication: Ill-defined disorder
     Dates: start: 20250224
  4. METFORMIN [Concomitant]
     Active Substance: METFORMIN HYDROCHLORIDE
     Indication: Ill-defined disorder
     Dosage: WITH FOOD
     Route: 048
     Dates: start: 20241120
  5. EMPAGLIFLOZIN [Concomitant]
     Active Substance: EMPAGLIFLOZIN
     Indication: Ill-defined disorder
     Route: 048
     Dates: start: 20241120
  6. LANSOPRAZOLE [Concomitant]
     Active Substance: LANSOPRAZOLE
     Indication: Ill-defined disorder
     Route: 048
     Dates: start: 20241120
  7. SIMVASTATIN [Concomitant]
     Active Substance: SIMVASTATIN
     Indication: Ill-defined disorder
     Dosage: AT NIGHT
     Route: 048
     Dates: start: 20241120
  8. MOUNJARO [Concomitant]
     Active Substance: TIRZEPATIDE
     Indication: Ill-defined disorder
     Dosage: USE ONCE WEEKLY
     Dates: start: 20250227
  9. RIVAROXABAN [Concomitant]
     Active Substance: RIVAROXABAN
     Indication: Ill-defined disorder
     Route: 048
     Dates: start: 20241120

REACTIONS (1)
  - Essential thrombocythaemia [Recovered/Resolved]

NARRATIVE: CASE EVENT DATE: 20250218
